FAERS Safety Report 8242623-8 (Version None)
Quarter: 2012Q1

REPORT INFORMATION
  Report Type: 
  Country: None (occurrence: None)
  Receive Date: 20120329
  Receipt Date: 20120320
  Transmission Date: 20120608
  Serious: Yes (Other)
  Sender: FDA-Public Use
  Company Number: PHHY2012AT025865

PATIENT
  Age: 60 Year
  Sex: Female

DRUGS (2)
  1. FEMARA [Suspect]
     Dosage: 1 DF, QW3
     Dates: start: 20111001
  2. FEMARA [Suspect]
     Indication: BREAST CANCER
     Dosage: 1 DF, QD
     Dates: start: 20110301, end: 20111001

REACTIONS (2)
  - FEELING ABNORMAL [None]
  - ADVERSE EVENT [None]
